FAERS Safety Report 5353293-0 (Version None)
Quarter: 2007Q2

REPORT INFORMATION
  Report Type: 
  Country: None (occurrence: None)
  Receive Date: 20070518
  Receipt Date: 20070302
  Transmission Date: 20071010
  Serious: No
  Sender: FDA-Public Use
  Company Number: TPA2007A00509

PATIENT
  Age: 56 Year
  Sex: Female
  Weight: 67.1324 kg

DRUGS (1)
  1. ROZEREM [Suspect]
     Indication: INSOMNIA
     Dosage: 8 MG, QHS, PER ORAL
     Route: 048
     Dates: start: 20070301, end: 20070302

REACTIONS (5)
  - FEELING ABNORMAL [None]
  - HEART RATE INCREASED [None]
  - INITIAL INSOMNIA [None]
  - PALPITATIONS [None]
  - SOMNOLENCE [None]
